FAERS Safety Report 8887583 (Version 1)
Quarter: 2012Q4

REPORT INFORMATION
  Report Type: Spontaneous
  Country: US (occurrence: None)
  Receive Date: 20121106
  Receipt Date: 20121106
  Transmission Date: 20130627
  Serious: Yes (Other)
  Sender: FDA-Public Use
  Company Number: None

PATIENT
  Sex: Female
  Weight: 59.88 kg

DRUGS (1)
  1. METHYLENE BLUE [Suspect]
     Indication: LYMPH NODE DISORDER
     Dates: start: 20120912, end: 20120912

REACTIONS (5)
  - Flank pain [None]
  - Incision site infection [None]
  - Movement disorder [None]
  - Fluid retention [None]
  - Weight increased [None]
